FAERS Safety Report 18395453 (Version 1)
Quarter: 2020Q4

REPORT INFORMATION
  Report Type: Other
  Country: GB (occurrence: GB)
  Receive Date: 20201017
  Receipt Date: 20201017
  Transmission Date: 20210114
  Serious: Yes (Other)
  Sender: FDA-Public Use
  Company Number: GB-EMCURE PHARMACEUTICALS LTD-2020-EPL-001571

PATIENT
  Age: 53 Year
  Sex: Male
  Weight: 147.9 kg

DRUGS (4)
  1. LISINOPRIL. [Suspect]
     Active Substance: LISINOPRIL
     Indication: HYPERTENSION
     Dosage: 5 MILLIGRAM
     Route: 048
     Dates: start: 20190501, end: 20200916
  2. AMLODIPINE BESILATE [Concomitant]
     Active Substance: AMLODIPINE BESYLATE
  3. ALPHATOCOPHEROL ACETATE [Concomitant]
  4. RISPERIDONE. [Interacting]
     Active Substance: RISPERIDONE
     Indication: ANXIETY
     Dosage: 2 MILLIGRAM
     Route: 048
     Dates: start: 19960501, end: 20200916

REACTIONS (3)
  - Labelled drug-drug interaction issue [Unknown]
  - Non-alcoholic steatohepatitis [Recovering/Resolving]
  - Renal pain [Recovering/Resolving]

NARRATIVE: CASE EVENT DATE: 20160501
